FAERS Safety Report 25800692 (Version 1)
Quarter: 2025Q3

REPORT INFORMATION
  Report Type: Spontaneous
  Country: CA (occurrence: CA)
  Receive Date: 20250915
  Receipt Date: 20250915
  Transmission Date: 20251020
  Serious: Yes (Life-Threatening, Hospitalization, Other)
  Sender: Haleon PLC
  Company Number: CA-HALEON-2262214

PATIENT
  Age: 74 Year
  Sex: Male

DRUGS (36)
  1. FLONASE ALLERGY RELIEF [Suspect]
     Active Substance: FLUTICASONE PROPIONATE
     Indication: Product used for unknown indication
  2. NUCALA [Suspect]
     Active Substance: MEPOLIZUMAB
     Indication: Asthma
     Route: 042
  3. NUCALA [Suspect]
     Active Substance: MEPOLIZUMAB
     Route: 042
  4. NUCALA [Suspect]
     Active Substance: MEPOLIZUMAB
     Route: 042
  5. OMALIZUMAB [Suspect]
     Active Substance: OMALIZUMAB
     Indication: Product used for unknown indication
  6. PAROXETINE HYDROCHLORIDE [Suspect]
     Active Substance: PAROXETINE HYDROCHLORIDE
     Indication: Product used for unknown indication
  7. PAROXETINE HYDROCHLORIDE [Suspect]
     Active Substance: PAROXETINE HYDROCHLORIDE
  8. PAROXETINE HYDROCHLORIDE [Suspect]
     Active Substance: PAROXETINE HYDROCHLORIDE
  9. PREDNISONE ACETATE [Suspect]
     Active Substance: PREDNISONE ACETATE
     Indication: Product used for unknown indication
  10. PREDNISONE ACETATE [Suspect]
     Active Substance: PREDNISONE ACETATE
  11. PREDNISONE ACETATE [Suspect]
     Active Substance: PREDNISONE ACETATE
  12. PREDNISONE ACETATE [Suspect]
     Active Substance: PREDNISONE ACETATE
  13. PREDNISONE ACETATE [Suspect]
     Active Substance: PREDNISONE ACETATE
  14. PREDNISONE ACETATE [Suspect]
     Active Substance: PREDNISONE ACETATE
  15. PREDNISONE ACETATE [Suspect]
     Active Substance: PREDNISONE ACETATE
  16. PREDNISONE ACETATE [Suspect]
     Active Substance: PREDNISONE ACETATE
  17. PREDNISONE ACETATE [Suspect]
     Active Substance: PREDNISONE ACETATE
  18. PREDNISONE ACETATE [Suspect]
     Active Substance: PREDNISONE ACETATE
  19. FLUTICASONE FUROATE [Suspect]
     Active Substance: FLUTICASONE FUROATE
     Indication: Product used for unknown indication
  20. BUDESONIDE\FORMOTEROL [Suspect]
     Active Substance: BUDESONIDE\FORMOTEROL
     Indication: Asthma
  21. BUDESONIDE\FORMOTEROL [Suspect]
     Active Substance: BUDESONIDE\FORMOTEROL
  22. BUDESONIDE\FORMOTEROL [Suspect]
     Active Substance: BUDESONIDE\FORMOTEROL
     Indication: Asthma
  23. BUDESONIDE\FORMOTEROL [Suspect]
     Active Substance: BUDESONIDE\FORMOTEROL
     Indication: Asthma
  24. FORMOTEROL FUMARATE [Suspect]
     Active Substance: FORMOTEROL FUMARATE
     Indication: Product used for unknown indication
  25. HYTRIN [Suspect]
     Active Substance: TERAZOSIN HYDROCHLORIDE
     Indication: Product used for unknown indication
     Route: 048
  26. ITRACONAZOLE [Suspect]
     Active Substance: ITRACONAZOLE
     Indication: Product used for unknown indication
  27. LANSOPRAZOLE [Suspect]
     Active Substance: LANSOPRAZOLE
     Indication: Product used for unknown indication
     Dosage: DOSAGE FORM:CAPSULE, DELAYED RELEASE
  28. MEPOLIZUMAB [Suspect]
     Active Substance: MEPOLIZUMAB
     Indication: Asthma
     Route: 042
  29. PREVACID [Suspect]
     Active Substance: LANSOPRAZOLE
     Indication: Product used for unknown indication
  30. PULMICORT TURBUHALER [Suspect]
     Active Substance: BUDESONIDE
     Indication: Product used for unknown indication
  31. ALBUTEROL [Suspect]
     Active Substance: ALBUTEROL
     Indication: Asthma
  32. SPORANOX [Suspect]
     Active Substance: ITRACONAZOLE
     Indication: Asthma
  33. VENTOLIN [Suspect]
     Active Substance: ALBUTEROL SULFATE
     Indication: Asthma
  34. VENTOLIN HFA [Suspect]
     Active Substance: ALBUTEROL SULFATE
     Indication: Product used for unknown indication
  35. WELLBUTRIN XL [Suspect]
     Active Substance: BUPROPION HYDROCHLORIDE
     Indication: Product used for unknown indication
     Dosage: DOSAGE FORM: EXTENDED RELEASE TABLET
  36. DEXILANT [Suspect]
     Active Substance: DEXLANSOPRAZOLE
     Indication: Product used for unknown indication

REACTIONS (14)
  - Bronchiectasis [Unknown]
  - Full blood count abnormal [Unknown]
  - Lung opacity [Unknown]
  - Chest pain [Unknown]
  - Blood alkaline phosphatase abnormal [Unknown]
  - Cough [Unknown]
  - Therapeutic product effect incomplete [Unknown]
  - Alanine aminotransferase abnormal [Unknown]
  - Hospitalisation [Unknown]
  - Fatigue [Unknown]
  - Sputum discoloured [Unknown]
  - Dyspnoea [Unknown]
  - Rhinorrhoea [Unknown]
  - Asthma [Unknown]
